FAERS Safety Report 22263363 (Version 2)
Quarter: 2023Q2

REPORT INFORMATION
  Report Type: Spontaneous
  Country: LV (occurrence: LV)
  Receive Date: 20230428
  Receipt Date: 20230521
  Transmission Date: 20230722
  Serious: Yes (Hospitalization, Other)
  Sender: FDA-Public Use
  Company Number: LV-009507513-2304LVA010396

PATIENT
  Age: 84 Year
  Sex: Female

DRUGS (2)
  1. PEMBROLIZUMAB [Suspect]
     Active Substance: PEMBROLIZUMAB
     Dosage: UNK
     Dates: start: 202206, end: 2022
  2. NIVOLUMAB [Suspect]
     Active Substance: NIVOLUMAB
     Dosage: UNK
     Dates: start: 202206, end: 2022

REACTIONS (8)
  - Hepatitis chronic active [Unknown]
  - Hepatic fibrosis [Unknown]
  - Cholestasis [Unknown]
  - Hepatitis viral [Unknown]
  - Drug-induced liver injury [Unknown]
  - Radiotherapy [Unknown]
  - Memory impairment [Unknown]
  - Pain in extremity [Unknown]

NARRATIVE: CASE EVENT DATE: 20221201
